FAERS Safety Report 6985005-9 (Version None)
Quarter: 2010Q3

REPORT INFORMATION
  Report Type: 
  Country: None (occurrence: None)
  Receive Date: 20100915
  Receipt Date: 20100902
  Transmission Date: 20110219
  Serious: Yes (Hospitalization, Other)
  Sender: FDA-Public Use
  Company Number: PHNU2007DE01675

PATIENT
  Sex: Female
  Weight: 60 kg

DRUGS (3)
  1. EXJADE [Suspect]
     Indication: HAEMOSIDEROSIS
     Dosage: 1500 MG/DAY
     Route: 048
     Dates: start: 20070116, end: 20081113
  2. LENALIDOMIDE [Concomitant]
     Dosage: 5 MG, QD
     Dates: start: 20071012
  3. REVLIMID [Concomitant]
     Indication: MYELODYSPLASTIC SYNDROME
     Dosage: 5 MG
     Route: 048
     Dates: start: 20070727, end: 20080519

REACTIONS (9)
  - ANAEMIA [None]
  - BLOOD CREATININE INCREASED [None]
  - CREATININE RENAL CLEARANCE DECREASED [None]
  - FACIAL BONES FRACTURE [None]
  - FALL [None]
  - FRACTURED SACRUM [None]
  - LACERATION [None]
  - LEUKOPENIA [None]
  - RIB FRACTURE [None]
